FAERS Safety Report 8114752-0 (Version None)
Quarter: 2012Q1

REPORT INFORMATION
  Report Type: 
  Country: None (occurrence: None)
  Receive Date: 20120206
  Receipt Date: 20120130
  Transmission Date: 20120608
  Serious: Yes (Hospitalization, Other)
  Sender: FDA-Public Use
  Company Number: US-CELGENEUS-163-21880-11100427

PATIENT
  Sex: Female

DRUGS (11)
  1. POTASSIUM [Concomitant]
     Route: 065
  2. BLOOD TRANSFUSION [Concomitant]
     Route: 065
  3. LEVOTHYROXINE SODIUM [Concomitant]
     Route: 065
  4. METFORMIN HCL [Concomitant]
     Route: 065
  5. FUROSEMIDE [Concomitant]
     Route: 065
  6. REVLIMID [Suspect]
     Indication: MULTIPLE MYELOMA
     Dosage: 10 MILLIGRAM
     Route: 048
     Dates: start: 20110729
  7. GLYBURIDE [Concomitant]
     Route: 065
  8. VALSARTAN [Concomitant]
     Route: 065
  9. INSULIN GLARGINE [Concomitant]
     Route: 065
  10. CITALOPRAM HYDROBROMIDE [Concomitant]
     Route: 065
  11. ASPIRIN [Concomitant]
     Route: 065

REACTIONS (2)
  - MELAENA [None]
  - ANAEMIA [None]
